FAERS Safety Report 5169610-0 (Version None)
Quarter: 2006Q4

REPORT INFORMATION
  Report Type: 
  Country: None (occurrence: None)
  Receive Date: 20060918
  Receipt Date: 20060606
  Transmission Date: 20070319
  Serious: Yes (Hospitalization)
  Sender: FDA-Public Use
  Company Number: US-JNJFOC-20060601318

PATIENT
  Age: 26 Year
  Sex: Female
  Weight: 61.2356 kg

DRUGS (3)
  1. ORTHO EVRA [Suspect]
     Indication: CONTRACEPTION
     Dosage: 1 DOSE (S), 3 IN 4 WEEK , TRANSDERMAL
     Route: 062
     Dates: start: 20031101
  2. VITAMINS [Concomitant]
  3. BLOOD TONIC (ALL OTHER THERAPEUTIC PRODUCTS) [Concomitant]

REACTIONS (4)
  - ASTHENIA [None]
  - COSTOCHONDRITIS [None]
  - SOMNOLENCE [None]
  - THROMBOSIS [None]
